FAERS Safety Report 4901838-4 (Version None)
Quarter: 2006Q1

REPORT INFORMATION
  Report Type: 
  Country: None (occurrence: None)
  Receive Date: 20060203
  Receipt Date: 20060203
  Transmission Date: 20060701
  Serious: Yes (Life-Threatening)
  Sender: FDA-Public Use
  Company Number: None

PATIENT
  Sex: Female
  Weight: 68.0396 kg

DRUGS (1)
  1. MAXALT [Suspect]
     Indication: MIGRAINE
     Dosage: PO
     Route: 048
     Dates: start: 20031030, end: 20031031

REACTIONS (1)
  - MYOCARDIAL INFARCTION [None]
